FAERS Safety Report 20691565 (Version 1)
Quarter: 2022Q2

REPORT INFORMATION
  Report Type: Spontaneous
  Country: JP (occurrence: JP)
  Receive Date: 20220408
  Receipt Date: 20220408
  Transmission Date: 20220721
  Serious: Yes (Other)
  Sender: FDA-Public Use
  Company Number: JP-PFIZER INC-202200506936

PATIENT
  Age: 93 Year

DRUGS (2)
  1. EPLERENONE [Suspect]
     Active Substance: EPLERENONE
     Indication: Cardiac failure chronic
     Dosage: UNK
     Route: 048
  2. EPLERENONE [Suspect]
     Active Substance: EPLERENONE
     Dosage: 50 MG
     Route: 048

REACTIONS (3)
  - Renal impairment [Unknown]
  - Cardiac failure chronic [Unknown]
  - Contraindicated product administered [Unknown]
